FAERS Safety Report 7018097-1 (Version None)
Quarter: 2010Q3

REPORT INFORMATION
  Report Type: 
  Country: None (occurrence: None)
  Receive Date: 20100928
  Receipt Date: 20100924
  Transmission Date: 20110219
  Serious: Yes (Death)
  Sender: FDA-Public Use
  Company Number: PHHY2010CA60283

PATIENT
  Sex: Male
  Weight: 110 kg

DRUGS (5)
  1. EXELON [Suspect]
     Dosage: UNK
     Route: 062
     Dates: start: 20090409
  2. LIPITOR [Concomitant]
     Dosage: UNK
  3. ALTACE [Concomitant]
     Dosage: UNK
  4. ASPIRIN [Concomitant]
     Dosage: 80 MG, UNK
  5. MONOCOR [Concomitant]
     Dosage: UNK

REACTIONS (1)
  - DEATH [None]
